FAERS Safety Report 9605711 (Version 1)
Quarter: 2013Q4

REPORT INFORMATION
  Report Type: Spontaneous
  Country: GB (occurrence: GB)
  Receive Date: 20131008
  Receipt Date: 20131008
  Transmission Date: 20140711
  Serious: Yes (Death)
  Sender: FDA-Public Use
  Company Number: GB-OPTIMER-20130387

PATIENT
  Sex: 0

DRUGS (3)
  1. DIFICLIR [Suspect]
     Indication: CLOSTRIDIUM DIFFICILE COLITIS
     Dosage: UNK
  2. VANCOMYCIN [Concomitant]
     Dosage: UNK
  3. IGG [Concomitant]
     Dosage: UNK
     Route: 042

REACTIONS (1)
  - Disease progression [Fatal]
